FAERS Safety Report 4294410-3 (Version None)
Quarter: 2004Q1

REPORT INFORMATION
  Report Type: 
  Country: None (occurrence: None)
  Receive Date: 20040211
  Receipt Date: 20040127
  Transmission Date: 20041129
  Serious: Yes (Hospitalization)
  Sender: FDA-Public Use
  Company Number: T04-USA-00435-01

PATIENT
  Age: 17 Year
  Sex: Male
  Weight: 97.0698 kg

DRUGS (1)
  1. ESCITALOPRAM (DOUBLE BLIND) (ESCITALOPRAM) [Suspect]
     Indication: MAJOR DEPRESSION
     Dosage: 1 TABLET QD PO
     Route: 048
     Dates: start: 20031203, end: 20040125

REACTIONS (2)
  - ABNORMAL BEHAVIOUR [None]
  - AGITATION [None]
